FAERS Safety Report 13766498 (Version 3)
Quarter: 2017Q4

REPORT INFORMATION
  Report Type: Spontaneous
  Country: IT (occurrence: IT)
  Receive Date: 20170719
  Receipt Date: 20171014
  Transmission Date: 20180320
  Serious: Yes (Other)
  Sender: FDA-Public Use
  Company Number: IT-ROCHE-1964754

PATIENT
  Age: 77 Year
  Sex: Male
  Weight: 70 kg

DRUGS (1)
  1. AVASTIN [Suspect]
     Active Substance: BEVACIZUMAB
     Indication: ANAL CANCER
     Dosage: CONCENTRATE FOR SOLUTION FOR INFUSION?1 X 100 MG VIAL
     Route: 041
     Dates: start: 20170522, end: 20170704

REACTIONS (2)
  - Cerebral ischaemia [Recovering/Resolving]
  - Postictal paralysis [Recovering/Resolving]

NARRATIVE: CASE EVENT DATE: 20170713
